FAERS Safety Report 7647862-2 (Version None)
Quarter: 2011Q3

REPORT INFORMATION
  Report Type: 
  Country: None (occurrence: None)
  Receive Date: 20110726
  Receipt Date: 20110714
  Transmission Date: 20111222
  Serious: Yes (Death)
  Sender: FDA-Public Use
  Company Number: 796535

PATIENT
  Age: 25 Year
  Sex: Male

DRUGS (14)
  1. MOXIFLOXACIN [Suspect]
     Indication: TUBERCULOSIS
     Dosage: INTRAVENOUS (NOT OTHERWISE SPECIFIED)
     Route: 042
  2. (CLOFAZIMINE) [Concomitant]
  3. ETHAMBUTOL HYDROCHLORIDE [Concomitant]
  4. HEPARIN [Concomitant]
  5. PYRAZINAMIDE [Concomitant]
  6. CYCLOSERINE [Concomitant]
  7. VALGANCICLOVIR [Concomitant]
  8. LINEZOLID [Concomitant]
  9. (PROTHIONAMIDE) [Concomitant]
  10. TRUVADA [Concomitant]
  11. ONDANSETRON [Suspect]
     Indication: PRODUCT USED FOR UNKNOWN INDICATION
  12. FLUCONAZOLE [Suspect]
     Indication: ORAL CANDIDIASIS
  13. RITONAVIR [Suspect]
     Indication: HIV INFECTION
  14. EFAVIRENZ [Concomitant]

REACTIONS (3)
  - ARRHYTHMIA [None]
  - ORAL CANDIDIASIS [None]
  - MENTAL DISORDER [None]
